FAERS Safety Report 19656055 (Version 3)
Quarter: 2021Q4

REPORT INFORMATION
  Report Type: Report from Study
  Country: US (occurrence: US)
  Receive Date: 20210804
  Receipt Date: 20211004
  Transmission Date: 20220303
  Serious: Yes (Other)
  Sender: FDA-Public Use
  Company Number: US-AMGEN-USASL2016079888

PATIENT
  Sex: Male

DRUGS (3)
  1. IBUPROFEN [Suspect]
     Active Substance: IBUPROFEN
     Indication: Product used for unknown indication
     Dosage: UNK
  2. ENBREL [Suspect]
     Active Substance: ETANERCEPT
     Indication: Ankylosing spondylitis
     Dosage: 50 MG, WEEKLY
     Route: 065
     Dates: start: 201506, end: 2015
  3. ALENDRONATE [Suspect]
     Active Substance: ALENDRONATE SODIUM
     Indication: Product used for unknown indication
     Dosage: UNK
     Route: 065

REACTIONS (17)
  - Tooth abscess [Unknown]
  - Paranasal sinus neoplasm [Unknown]
  - Sinus polyp [Unknown]
  - Ankylosing spondylitis [Unknown]
  - Ankylosing spondylitis [Unknown]
  - Diabetes insipidus [Unknown]
  - Gastroenteritis [Unknown]
  - Tooth fracture [Unknown]
  - Sinusitis [Unknown]
  - Tooth disorder [Unknown]
  - Sinus congestion [Unknown]
  - Rhinorrhoea [Unknown]
  - Illness [Unknown]
  - Suspected COVID-19 [Unknown]
  - Influenza [Unknown]
  - Muscle spasms [Unknown]
  - Gait inability [Unknown]

NARRATIVE: CASE EVENT DATE: 20150101
